FAERS Safety Report 5685192-9 (Version None)
Quarter: 2008Q1

REPORT INFORMATION
  Report Type: 
  Country: None (occurrence: None)
  Receive Date: 20080328
  Receipt Date: 20080319
  Transmission Date: 20080703
  Serious: Yes (Hospitalization)
  Sender: FDA-Public Use
  Company Number: US-ABBOTT-08P-163-0443503-00

PATIENT
  Sex: Male

DRUGS (5)
  1. VICODIN [Suspect]
     Indication: NEURALGIA
     Dates: start: 19940101
  2. OXYCODONE HYDROCHLORIDE [Suspect]
     Indication: NEURALGIA
     Dates: end: 20040101
  3. OXYCODONE HYDROCHLORIDE [Suspect]
     Dosage: DOSE
     Dates: start: 20040101, end: 20070801
  4. OXYCODONE HYDROCHLORIDE [Suspect]
  5. ALPRAZOLAM [Suspect]
     Indication: DRUG USE FOR UNKNOWN INDICATION
     Dates: start: 20060101

REACTIONS (12)
  - CONVULSION [None]
  - DRUG ABUSE [None]
  - DRUG DEPENDENCE [None]
  - DRUG DETOXIFICATION [None]
  - FEELING ABNORMAL [None]
  - HYPERAESTHESIA [None]
  - MALAISE [None]
  - PAIN [None]
  - PERIPHERAL COLDNESS [None]
  - SKIN DISCOLOURATION [None]
  - SUICIDAL IDEATION [None]
  - THINKING ABNORMAL [None]
